FAERS Safety Report 22084220 (Version 1)
Quarter: 2023Q1

REPORT INFORMATION
  Report Type: Report from Study
  Country: CA (occurrence: CA)
  Receive Date: 20230310
  Receipt Date: 20230310
  Transmission Date: 20230417
  Serious: Yes (Other)
  Sender: FDA-Public Use
  Company Number: CA-ABBVIE-4333825

PATIENT
  Age: 68 Year
  Sex: Male

DRUGS (1)
  1. RINVOQ [Suspect]
     Active Substance: UPADACITINIB
     Indication: Rheumatoid arthritis
     Dosage: FORM STRENGTH- 15 MG
     Route: 048
     Dates: start: 20221201, end: 2023

REACTIONS (2)
  - Trigger finger [Unknown]
  - Post procedural infection [Unknown]

NARRATIVE: CASE EVENT DATE: 20230228
